FAERS Safety Report 7519758-8 (Version None)
Quarter: 2011Q2

REPORT INFORMATION
  Report Type: 
  Country: None (occurrence: None)
  Receive Date: 20110524
  Receipt Date: 20110509
  Transmission Date: 20111010
  Serious: Yes (Death, Life-Threatening, Other)
  Sender: FDA-Public Use
  Company Number: FK201100928

PATIENT
  Age: 34 Year
  Sex: Female
  Weight: 70 kg

DRUGS (2)
  1. OXYTOCIC [Suspect]
     Indication: HAEMORRHAGE PROPHYLAXIS
     Dosage: 200, MU/MIN TOTAL: 36UNITS IN 24HR, INTRAVENOUS
     Route: 042
  2. 5% DEXTROSE SOLUTION [Concomitant]

REACTIONS (4)
  - CARDIAC ARREST [None]
  - POSTPARTUM DISORDER [None]
  - PULMONARY OEDEMA [None]
  - DRUG EXPOSURE DURING PREGNANCY [None]
